FAERS Safety Report 12676115 (Version 1)
Quarter: 2016Q3

REPORT INFORMATION
  Report Type: Spontaneous
  Country: US (occurrence: None)
  Receive Date: 20160822
  Receipt Date: 20160822
  Transmission Date: 20161109
  Serious: Yes (Other)
  Sender: FDA-Public Use
  Company Number: None

PATIENT
  Sex: Male
  Weight: 58.97 kg

DRUGS (1)
  1. DIOVAN [Suspect]
     Active Substance: VALSARTAN
     Dates: start: 20160227, end: 20160721

REACTIONS (2)
  - Expired product administered [None]
  - Drug dispensing error [None]
